FAERS Safety Report 4799911-7 (Version None)
Quarter: 2005Q4

REPORT INFORMATION
  Report Type: 
  Country: None (occurrence: None)
  Receive Date: 20051017
  Receipt Date: 20051010
  Transmission Date: 20060501
  Serious: Yes (Hospitalization)
  Sender: FDA-Public Use
  Company Number: 200513313FR

PATIENT
  Age: 73 Year
  Sex: Female

DRUGS (3)
  1. ARAVA [Suspect]
     Indication: RHEUMATOID ARTHRITIS
     Route: 048
     Dates: start: 20040901, end: 20050301
  2. CORTANCYL [Concomitant]
     Indication: RHEUMATOID ARTHRITIS
     Route: 048
  3. SULFASALAZINE [Concomitant]
     Indication: RHEUMATOID ARTHRITIS
     Route: 048
     Dates: start: 20050601, end: 20050101

REACTIONS (12)
  - ABDOMINAL DISTENSION [None]
  - ALOPECIA [None]
  - ASTHENIA [None]
  - COLITIS [None]
  - COUGH [None]
  - CREPITATIONS [None]
  - DYSPNOEA [None]
  - GASTROINTESTINAL DISORDER [None]
  - HYPERTENSION [None]
  - PULMONARY FUNCTION TEST ABNORMAL [None]
  - RALES [None]
  - TOXIC SKIN ERUPTION [None]
